FAERS Safety Report 4615150-4 (Version None)
Quarter: 2005Q1

REPORT INFORMATION
  Report Type: 
  Country: None (occurrence: None)
  Receive Date: 20050322
  Receipt Date: 20050321
  Transmission Date: 20050727
  Serious: Yes (Other)
  Sender: FDA-Public Use
  Company Number: US-GLAXOSMITHKLINE-A0550640A

PATIENT
  Sex: Female

DRUGS (3)
  1. AVANDIA [Suspect]
     Route: 048
     Dates: start: 20000101, end: 20000101
  2. AVANDAMET [Suspect]
     Route: 048
     Dates: start: 20050101, end: 20050321
  3. AMARYL [Concomitant]
     Indication: DRUG USE FOR UNKNOWN INDICATION

REACTIONS (2)
  - BLOOD GLUCOSE INCREASED [None]
  - CORNEAL OEDEMA [None]
